FAERS Safety Report 7128992-0 (Version None)
Quarter: 2010Q4

REPORT INFORMATION
  Report Type: 
  Country: None (occurrence: None)
  Receive Date: 20101130
  Receipt Date: 20071024
  Transmission Date: 20110411
  Serious: Yes (Other)
  Sender: FDA-Public Use
  Company Number: AU-ROCHE-742878

PATIENT
  Sex: Male

DRUGS (4)
  1. AVASTIN [Suspect]
     Route: 065
  2. FLUOROURACIL [Concomitant]
  3. IRINOTECAN [Concomitant]
  4. LEUCOVORIN CALCIUM [Concomitant]

REACTIONS (1)
  - MALIGNANT NEOPLASM PROGRESSION [None]
